FAERS Safety Report 24980166 (Version 1)
Quarter: 2025Q1

REPORT INFORMATION
  Report Type: Spontaneous
  Country: US (occurrence: US)
  Receive Date: 20250218
  Receipt Date: 20250218
  Transmission Date: 20250409
  Serious: Yes (Hospitalization, Other)
  Sender: MYLAN
  Company Number: US-MYLANLABS-2025M1012424

PATIENT
  Age: 66 Year
  Sex: Female

DRUGS (8)
  1. NICOTINIC ACID [Suspect]
     Active Substance: NIACIN
     Indication: Squamous cell carcinoma of skin
     Route: 065
  2. PREDNISONE [Suspect]
     Active Substance: PREDNISONE
     Indication: Prophylaxis against transplant rejection
     Route: 065
  3. TACROLIMUS [Suspect]
     Active Substance: TACROLIMUS
     Indication: Prophylaxis against transplant rejection
     Route: 065
     Dates: end: 202106
  4. TACROLIMUS [Suspect]
     Active Substance: TACROLIMUS
     Dosage: 0.5 MILLIGRAM, QD
     Route: 065
     Dates: start: 202106, end: 202206
  5. SIROLIMUS [Suspect]
     Active Substance: SIROLIMUS
     Indication: Prophylaxis against transplant rejection
     Dosage: 1 MILLIGRAM, QD
     Route: 065
     Dates: start: 202206
  6. TALIMOGENE LAHERPAREPVEC [Concomitant]
     Active Substance: TALIMOGENE LAHERPAREPVEC
     Indication: Squamous cell carcinoma of skin
     Route: 026
     Dates: start: 20200923, end: 20201028
  7. TALIMOGENE LAHERPAREPVEC [Concomitant]
     Active Substance: TALIMOGENE LAHERPAREPVEC
     Dosage: 2 MILLILITER, Q28D
     Route: 026
     Dates: start: 20201028, end: 20201223
  8. TALIMOGENE LAHERPAREPVEC [Concomitant]
     Active Substance: TALIMOGENE LAHERPAREPVEC
     Route: 026
     Dates: start: 20210429

REACTIONS (2)
  - Drug ineffective [Unknown]
  - Squamous cell carcinoma of skin [Recovering/Resolving]
